FAERS Safety Report 4784471-7 (Version None)
Quarter: 2005Q3

REPORT INFORMATION
  Report Type: 
  Country: None (occurrence: None)
  Receive Date: 20050929
  Receipt Date: 20050929
  Transmission Date: 20060218
  Serious: Yes (Death, Hospitalization)
  Sender: FDA-Public Use
  Company Number: None

PATIENT
  Sex: Male
  Weight: 86 kg

DRUGS (3)
  1. CYTARABINE [Suspect]
     Indication: ACUTE MYELOID LEUKAEMIA
     Dosage: SEE IMAGE
     Route: 042
     Dates: start: 20050902
  2. DAUNOMYCIN [Suspect]
     Dosage: SEE IMAGE
     Route: 042
     Dates: start: 20050902
  3. VP-16 [Suspect]
     Dosage: SEE IMAGE
     Route: 042
     Dates: start: 20050902

REACTIONS (9)
  - BACTERIAL SEPSIS [None]
  - CHOLELITHIASIS [None]
  - CIRCULATORY COLLAPSE [None]
  - CONVULSION [None]
  - GENERAL PHYSICAL HEALTH DETERIORATION [None]
  - HYPOTENSION [None]
  - LOSS OF CONSCIOUSNESS [None]
  - MULTI-ORGAN FAILURE [None]
  - OBSTRUCTIVE AIRWAYS DISORDER [None]
